FAERS Safety Report 25468016 (Version 4)
Quarter: 2025Q3

REPORT INFORMATION
  Report Type: Report from Study
  Country: US (occurrence: US)
  Receive Date: 20250623
  Receipt Date: 20250725
  Transmission Date: 20251020
  Serious: Yes (Other)
  Sender: ACADIA PHARMACEUTICALS
  Company Number: US-ACADIA PHARMACEUTICALS INC.-ACA-2025-PIM-007318

PATIENT
  Age: 72 Year
  Sex: Male

DRUGS (13)
  1. NUPLAZID [Suspect]
     Active Substance: PIMAVANSERIN TARTRATE
     Indication: Parkinson^s disease
     Dosage: 34 MILLIGRAM, QD
     Route: 048
     Dates: start: 20250617, end: 20250625
  2. NUPLAZID [Suspect]
     Active Substance: PIMAVANSERIN TARTRATE
     Indication: Hallucination
  3. NUPLAZID [Suspect]
     Active Substance: PIMAVANSERIN TARTRATE
     Indication: Delusion
  4. NUPLAZID [Suspect]
     Active Substance: PIMAVANSERIN TARTRATE
     Indication: Parkinson^s disease psychosis
  5. CARBIDOPA\LEVODOPA [Concomitant]
     Active Substance: CARBIDOPA\LEVODOPA
  6. GABAPENTIN [Concomitant]
     Active Substance: GABAPENTIN
  7. ROPINIROLE HYDROCHLORIDE [Concomitant]
     Active Substance: ROPINIROLE HYDROCHLORIDE
  8. SINEMET [Concomitant]
     Active Substance: CARBIDOPA\LEVODOPA
  9. COENZYME Q10 [Concomitant]
     Active Substance: DIETARY SUPPLEMENT\UBIDECARENONE
  10. VITAMINS [Concomitant]
     Active Substance: VITAMINS
  11. ROPINIROLE [Concomitant]
     Active Substance: ROPINIROLE
  12. FISH OIL [Concomitant]
     Active Substance: FISH OIL
  13. VITAMIN D3 [Concomitant]
     Active Substance: CHOLECALCIFEROL

REACTIONS (9)
  - Haematochezia [Unknown]
  - Dysarthria [Not Recovered/Not Resolved]
  - Speech disorder [Not Recovered/Not Resolved]
  - Arthropod bite [Not Recovered/Not Resolved]
  - Swelling [Not Recovered/Not Resolved]
  - Blister [Not Recovered/Not Resolved]
  - Frequent bowel movements [Unknown]
  - Cardiac output increased [Unknown]
  - Gait disturbance [Not Recovered/Not Resolved]

NARRATIVE: CASE EVENT DATE: 20250617
